FAERS Safety Report 18786991 (Version 1)
Quarter: 2021Q1

REPORT INFORMATION
  Report Type: Spontaneous
  Country: CA (occurrence: CA)
  Receive Date: 20210126
  Receipt Date: 20210126
  Transmission Date: 20210419
  Serious: Yes (Hospitalization, Other)
  Sender: FDA-Public Use
  Company Number: CA-009507513-2101CAN011363

PATIENT
  Age: 46 Year
  Sex: Male
  Weight: 97 kg

DRUGS (1)
  1. INVANZ [Suspect]
     Active Substance: ERTAPENEM SODIUM
     Indication: OSTEOMYELITIS
     Dosage: 1.0 GRAM, 1 EVERY 24 HOURS, THERAPY DURATION: 11 DAYS
     Route: 042

REACTIONS (1)
  - Renal tubular necrosis [Recovering/Resolving]
